FAERS Safety Report 11793141 (Version 1)
Quarter: 2015Q4

REPORT INFORMATION
  Report Type: Spontaneous
  Country: US (occurrence: None)
  Receive Date: 20151201
  Receipt Date: 20151201
  Transmission Date: 20160305
  Serious: Yes (Death)
  Sender: FDA-Public Use
  Company Number: None

PATIENT
  Age: 78 Year
  Sex: Male

DRUGS (1)
  1. SENSIPAR [Suspect]
     Active Substance: CINACALCET HYDROCHLORIDE
     Dosage: 30MG  5 DAYS A WEEK  PO
     Route: 048
     Dates: start: 20140820, end: 20151011

REACTIONS (1)
  - Death [None]

NARRATIVE: CASE EVENT DATE: 20151012
